FAERS Safety Report 5141920-2 (Version None)
Quarter: 2006Q4

REPORT INFORMATION
  Report Type: 
  Country: None (occurrence: None)
  Receive Date: 20060919
  Receipt Date: 20060807
  Transmission Date: 20070319
  Serious: No
  Sender: FDA-Public Use
  Company Number: 2006US001144

PATIENT
  Age: 38 Year
  Sex: Female

DRUGS (1)
  1. VESICARE [Suspect]
     Indication: POLLAKIURIA
     Dosage: 5 MG
     Dates: end: 20060514

REACTIONS (2)
  - DRY MOUTH [None]
  - STOMATITIS [None]
